FAERS Safety Report 7517065-0 (Version None)
Quarter: 2011Q2

REPORT INFORMATION
  Report Type: 
  Country: None (occurrence: None)
  Receive Date: 20110601
  Receipt Date: 20110518
  Transmission Date: 20111010
  Serious: Yes (Death, Hospitalization, Disabling, Other)
  Sender: FDA-Public Use
  Company Number: US-CELGENEUS-163-21880-10100572

PATIENT
  Sex: Female
  Weight: 69.85 kg

DRUGS (12)
  1. BUDESONIDE/FORMOTEROL [Concomitant]
     Dosage: 160/4.5MCG
     Route: 065
  2. MULTI-VITAMINS [Concomitant]
     Route: 065
  3. VANCOMYCIN [Concomitant]
     Dosage: 1.5 GRAM
     Route: 051
  4. ANTIBIOTICS [Concomitant]
     Route: 065
     Dates: start: 20101001
  5. ENOXAPARIN [Concomitant]
     Dosage: 40 MILLIGRAM
     Route: 058
  6. DEXTROSE [Concomitant]
     Route: 065
  7. MORPHINE [Concomitant]
     Route: 065
  8. REVLIMID [Suspect]
     Indication: MYELODYSPLASTIC SYNDROME
     Dosage: 5 MILLIGRAM
     Route: 048
     Dates: start: 20100810, end: 20100901
  9. ERTAPENEM [Concomitant]
     Dosage: 1 GRAM
     Route: 051
  10. NEXIUM [Concomitant]
     Dosage: 40 MILLIGRAM
     Route: 065
  11. INSULIN [Concomitant]
     Route: 065
  12. GLUCAGON [Concomitant]
     Route: 065

REACTIONS (8)
  - CHRONIC OBSTRUCTIVE PULMONARY DISEASE [None]
  - JOINT SPRAIN [None]
  - NEUROPATHY PERIPHERAL [None]
  - URINARY TRACT INFECTION [None]
  - FALL [None]
  - HIP FRACTURE [None]
  - SEPSIS [None]
  - CONFUSIONAL STATE [None]
